FAERS Safety Report 5145395-9 (Version None)
Quarter: 2006Q4

REPORT INFORMATION
  Report Type: 
  Country: None (occurrence: None)
  Receive Date: 20061101
  Receipt Date: 20061023
  Transmission Date: 20070319
  Serious: No
  Sender: FDA-Public Use
  Company Number: ES-2006-028746

PATIENT
  Age: 52 Year
  Sex: Female

DRUGS (3)
  1. ANGELIQ [Suspect]
     Dosage: 1 TAB(S), UNK, ORAL
     Route: 048
     Dates: start: 20040101
  2. NAPROXEN [Suspect]
     Dosage: UNK TAB(S), OTHER, ORAL
     Route: 048
     Dates: start: 19950101
  3. ALOE VERA(ALOE VERA) CREAM [Suspect]
     Dosage: UNK, UNK, TOPICAL
     Route: 061
     Dates: start: 19990101

REACTIONS (9)
  - BLOOD PRESSURE DIASTOLIC DECREASED [None]
  - FACE OEDEMA [None]
  - GENERALISED ERYTHEMA [None]
  - LARYNGEAL OEDEMA [None]
  - NERVOUSNESS [None]
  - PRURITUS [None]
  - SPEECH DISORDER [None]
  - URTICARIA [None]
  - VISION BLURRED [None]
